FAERS Safety Report 5313080-6 (Version None)
Quarter: 2007Q2

REPORT INFORMATION
  Report Type: 
  Country: None (occurrence: None)
  Receive Date: 20070424
  Receipt Date: 20070413
  Transmission Date: 20071010
  Serious: Yes (Other)
  Sender: FDA-Public Use
  Company Number: GXKR2007US03476

PATIENT
  Age: 69 Year
  Sex: Female

DRUGS (4)
  1. PREDNISONE [Suspect]
     Indication: ASTHMA
     Dosage: 60 MG, UNK, ORAL
     Route: 048
  2. FLUTICASONE W/SALMETEROL (FLUTICASONE, SALMETEROL) [Suspect]
     Indication: ASTHMA
     Dosage: UNK, UNK, INHALATION
     Route: 055
  3. ALBUTEROL [Concomitant]
  4. IPRATROPIUM BROMIDE [Concomitant]

REACTIONS (8)
  - CHOKING SENSATION [None]
  - FLUSHING [None]
  - HYPERSENSITIVITY [None]
  - HYPOTENSION [None]
  - RESPIRATORY DISTRESS [None]
  - RESPIRATORY FAILURE [None]
  - THROAT TIGHTNESS [None]
  - URTICARIA [None]
